FAERS Safety Report 16052310 (Version 2)
Quarter: 2019Q2

REPORT INFORMATION
  Report Type: Spontaneous
  Country: US (occurrence: US)
  Receive Date: 20190308
  Receipt Date: 20190411
  Transmission Date: 20190711
  Serious: Yes (Other)
  Sender: FDA-Public Use
  Company Number: US-GLAXOSMITHKLINE-US2019AMR041826

PATIENT
  Age: 71 Year
  Sex: Male

DRUGS (1)
  1. ADVAIR HFA [Suspect]
     Active Substance: FLUTICASONE PROPIONATE\SALMETEROL XINAFOATE
     Indication: PRODUCT USED FOR UNKNOWN INDICATION
     Dosage: UNK
     Route: 055
     Dates: start: 2007

REACTIONS (6)
  - Vascular stent insertion [Unknown]
  - Cardiac disorder [Unknown]
  - Stress [Unknown]
  - Poor peripheral circulation [Unknown]
  - Respiration abnormal [Unknown]
  - Surgery [Unknown]

NARRATIVE: CASE EVENT DATE: 20190227
